FAERS Safety Report 5292560-6 (Version None)
Quarter: 2007Q2

REPORT INFORMATION
  Report Type: 
  Country: None (occurrence: None)
  Receive Date: 20070410
  Receipt Date: 20070402
  Transmission Date: 20071010
  Serious: Yes (Hospitalization)
  Sender: FDA-Public Use
  Company Number: CN-GENENTECH-239546

PATIENT
  Sex: Female

DRUGS (4)
  1. MABTHERA [Suspect]
     Indication: LYMPHOMA
     Route: 042
     Dates: start: 20070312
  2. ISOPHOSPHAMIDE [Concomitant]
     Indication: LYMPHOMA
     Route: 042
     Dates: start: 20070312
  3. CISPLATIN [Concomitant]
     Indication: LYMPHOMA
     Route: 042
     Dates: start: 20070312
  4. ETOPOSIDE [Concomitant]
     Indication: LYMPHOMA
     Route: 042
     Dates: start: 20070312

REACTIONS (3)
  - APHASIA [None]
  - NEUROTOXICITY [None]
  - WHITE BLOOD CELL COUNT DECREASED [None]
